FAERS Safety Report 8162473-0 (Version None)
Quarter: 2012Q1

REPORT INFORMATION
  Report Type: 
  Country: None (occurrence: None)
  Receive Date: 20120224
  Receipt Date: 20120224
  Transmission Date: 20120608
  Serious: Yes (Life-Threatening, Hospitalization)
  Sender: FDA-Public Use
  Company Number: None

PATIENT
  Age: 77 Year
  Sex: Male
  Weight: 65.317 kg

DRUGS (2)
  1. HALDOL [Suspect]
  2. CARVADOPA/LEVADOPA 25/100. [Concomitant]
     Route: 048

REACTIONS (4)
  - CONTRAINDICATION TO MEDICAL TREATMENT [None]
  - TOOTH FRACTURE [None]
  - DYSKINESIA [None]
  - UNRESPONSIVE TO STIMULI [None]
